FAERS Safety Report 5695078-1 (Version None)
Quarter: 2008Q2

REPORT INFORMATION
  Report Type: 
  Country: None (occurrence: None)
  Receive Date: 20080404
  Receipt Date: 20080328
  Transmission Date: 20081010
  Serious: Yes (Hospitalization, Other)
  Sender: FDA-Public Use
  Company Number: US-JNJFOC-20080307038

PATIENT
  Sex: Male
  Weight: 136 kg

DRUGS (11)
  1. TOPAMAX [Suspect]
     Indication: DIABETIC NEUROPATHY
     Route: 048
  2. CYMBALTA [Suspect]
     Indication: DIABETIC NEUROPATHY
     Route: 048
  3. LISINOPRIL [Concomitant]
     Indication: HYPERTENSION
  4. GEMFIBROZIL [Concomitant]
     Indication: BLOOD CHOLESTEROL
  5. ACETYLSALICYLIC ACID SRT [Concomitant]
     Indication: PROPHYLAXIS
  6. CALCIUM [Concomitant]
     Indication: MINERAL SUPPLEMENTATION
     Dosage: 2 TABS (1 D)
  7. HYDROCHLOROTHIAZIDE [Concomitant]
     Indication: HYPERTENSION
  8. LORATADINE [Concomitant]
     Indication: SEASONAL ALLERGY
  9. GLIMEPIRIDE [Concomitant]
     Indication: DIABETES MELLITUS
  10. COZAAR [Concomitant]
     Indication: RENAL IMPAIRMENT
  11. VITAMIN CAP [Concomitant]
     Indication: VITAMIN SUPPLEMENTATION

REACTIONS (1)
  - CORONARY ARTERY DISEASE [None]
